FAERS Safety Report 6430536-3 (Version None)
Quarter: 2009Q4

REPORT INFORMATION
  Report Type: 
  Country: None (occurrence: None)
  Receive Date: 20091106
  Receipt Date: 20091102
  Transmission Date: 20100525
  Serious: Yes (Hospitalization)
  Sender: FDA-Public Use
  Company Number: A0814381A

PATIENT
  Age: 5 Year
  Sex: Female

DRUGS (5)
  1. FLOVENT [Suspect]
     Indication: ASTHMA
     Dosage: 2PUFF TWICE PER DAY
     Route: 055
     Dates: start: 20080501
  2. SINGULAIR [Concomitant]
  3. ZYRTEC [Concomitant]
  4. XOPENEX [Concomitant]
  5. MULTI-VITAMINS [Concomitant]

REACTIONS (4)
  - BONE DENSITY DECREASED [None]
  - FRACTURE [None]
  - RADIUS FRACTURE [None]
  - ULNA FRACTURE [None]
